FAERS Safety Report 5613502-7 (Version None)
Quarter: 2008Q1

REPORT INFORMATION
  Report Type: 
  Country: None (occurrence: None)
  Receive Date: 20080129
  Receipt Date: 20080111
  Transmission Date: 20080703
  Serious: Yes (Hospitalization)
  Sender: FDA-Public Use
  Company Number: 230034J08CAN

PATIENT
  Sex: Female

DRUGS (1)
  1. REBIF [Suspect]
     Indication: RELAPSING-REMITTING MULTIPLE SCLEROSIS
     Dosage: SUBCUTANEOUS
     Route: 058
     Dates: start: 20020204

REACTIONS (4)
  - CERVIX CARCINOMA [None]
  - CLOSTRIDIAL INFECTION [None]
  - HAEMORRHAGE [None]
  - UTERINE CANCER [None]
